FAERS Safety Report 9901160 (Version 1)
Quarter: 2014Q1

REPORT INFORMATION
  Report Type: Spontaneous
  Country: US (occurrence: US)
  Receive Date: 20140217
  Receipt Date: 20140217
  Transmission Date: 20141002
  Serious: No
  Sender: FDA-Public Use
  Company Number: US-PFIZER INC-2014044821

PATIENT
  Age: 53 Year
  Sex: Female
  Weight: 97.05 kg

DRUGS (2)
  1. CHANTIX [Suspect]
     Indication: SMOKING CESSATION THERAPY
     Dosage: UNK
     Route: 048
     Dates: end: 201401
  2. LISINOPRIL [Concomitant]
     Indication: HYPERTENSION
     Dosage: 40 MG, DAILY

REACTIONS (1)
  - Somnambulism [Not Recovered/Not Resolved]
